FAERS Safety Report 8925975 (Version 5)
Quarter: 2013Q1

REPORT INFORMATION
  Report Type: Spontaneous
  Country: JP (occurrence: JP)
  Receive Date: 20121126
  Receipt Date: 20130206
  Transmission Date: 20140127
  Serious: Yes (Hospitalization)
  Sender: FDA-Public Use
  Company Number: JP-B.I. PHARMACEUTICALS,INC./RIDGEFIELD-2012-BI-00872NB

PATIENT
  Sex: Male
  Weight: 58.7 kg

DRUGS (12)
  1. PRADAXA [Suspect]
     Indication: ATRIAL FIBRILLATION
     Dosage: 300 MG
     Route: 048
     Dates: start: 201209, end: 20121214
  2. BAYASPIRIN [Concomitant]
     Dosage: 100 MG
     Route: 065
  3. MAINTATE [Concomitant]
     Dosage: 5 MG
     Route: 065
  4. LOXONIN [Concomitant]
     Dosage: 180 MG
     Route: 065
  5. HALFDIGOXIN [Concomitant]
     Dosage: 0.125 MG
     Route: 065
  6. NORVASC [Concomitant]
     Dosage: 5 MG
     Route: 065
  7. BEZATOL SR [Concomitant]
     Dosage: 400 MG
     Route: 065
  8. LENDORMIN D [Concomitant]
     Dosage: 0.25 MG
     Route: 065
  9. DEPAS [Concomitant]
     Dosage: 0.5 MG
     Route: 065
  10. NEXIUM [Concomitant]
     Dosage: 20 MG
     Route: 065
  11. MUCOSTA [Concomitant]
     Dosage: 300 MG
     Route: 065
  12. DIART [Concomitant]
     Dosage: 30 MG
     Route: 065
     Dates: start: 20121120, end: 20121130

REACTIONS (5)
  - Generalised oedema [Recovered/Resolved]
  - Pleural effusion [Recovered/Resolved]
  - Pericardial effusion [Recovered/Resolved]
  - Palpitations [Recovered/Resolved]
  - Feeling abnormal [Recovered/Resolved]
